FAERS Safety Report 14481989 (Version 3)
Quarter: 2023Q1

REPORT INFORMATION
  Report Type: Spontaneous
  Country: US (occurrence: US)
  Receive Date: 20180202
  Receipt Date: 20230313
  Transmission Date: 20230418
  Serious: Yes (Other)
  Sender: FDA-Public Use
  Company Number: US-INDIVIOR LIMITED-INDV-108440-2018

PATIENT

DRUGS (1)
  1. SUBOXONE [Suspect]
     Active Substance: BUPRENORPHINE HYDROCHLORIDE\NALOXONE HYDROCHLORIDE
     Indication: Drug dependence
     Dosage: UNK
     Route: 065

REACTIONS (2)
  - Loss of consciousness [Recovered/Resolved]
  - Disorientation [Unknown]

NARRATIVE: CASE EVENT DATE: 20180119
